FAERS Safety Report 16808843 (Version 1)
Quarter: 2019Q3

REPORT INFORMATION
  Report Type: Spontaneous
  Country: US (occurrence: US)
  Receive Date: 20190916
  Receipt Date: 20190916
  Transmission Date: 20191005
  Serious: No
  Sender: FDA-Public Use
  Company Number: US-AUROBINDO-AUR-APU-2018-053763

PATIENT

DRUGS (1)
  1. PAROXETINE TABLETS USP 40MG [Suspect]
     Active Substance: PAROXETINE
     Indication: DEPRESSION
     Dosage: 1 TABLET, ONCE A DAY
     Route: 048

REACTIONS (2)
  - Malaise [Recovered/Resolved]
  - Vomiting [Recovered/Resolved]
